FAERS Safety Report 9747639 (Version 1)
Quarter: 2013Q4

REPORT INFORMATION
  Report Type: Spontaneous
  Country: US (occurrence: None)
  Receive Date: 20131205
  Receipt Date: 20131205
  Transmission Date: 20140711
  Serious: Yes (Hospitalization)
  Sender: FDA-Public Use
  Company Number: SYM-2013-13468

PATIENT
  Age: 63 Year
  Sex: Male

DRUGS (4)
  1. 5 FU [Suspect]
     Indication: COLORECTAL CANCER METASTATIC
     Dosage: 400 GM/M2, EVERY OTHER WEEK,
     Dates: start: 20130723, end: 20130723
  2. AFLIBERCEPT (AFLIBERCEPT) (SOLUTION FOR INFUSION) (AFLIBERCEPT) [Suspect]
     Indication: COLORECTAL CANCER METASTATIC
     Dosage: 4 MG/KG, EVERY OTHER WEEK,
     Dates: start: 20130723, end: 20130723
  3. IRINOTECAN (IRINOTECAN) (SOLUTION FOR INFUSION) (IRINOTECAN) [Suspect]
     Indication: COLORECTAL CANCER METASTATIC
     Dosage: 180 MG/M2, EVERY OTHER WEEK,
     Dates: start: 20130723, end: 20130723
  4. LEUCOVORIN (FOLINIC ACID) (SOLUTION FOR INFUSION) (FOLINIC ACID) [Suspect]
     Indication: COLORECTAL CANCER METASTATIC
     Dosage: 400 MG/M2, EVERY OTHER WEEK,
     Dates: start: 20130723, end: 20130723

REACTIONS (2)
  - Abdominal pain [None]
  - Pyrexia [None]
